FAERS Safety Report 8998643 (Version 1)
Quarter: 2013Q1

REPORT INFORMATION
  Report Type: Report from Study
  Country: US (occurrence: US)
  Receive Date: 20130103
  Receipt Date: 20130103
  Transmission Date: 20140127
  Serious: Yes (Other)
  Sender: FDA-Public Use
  Company Number: US-PFIZER INC-2012331258

PATIENT
  Sex: Female

DRUGS (3)
  1. ADRIAMYCIN [Suspect]
     Indication: BREAST CANCER
     Dosage: UNK
  2. DOCETAXEL [Suspect]
     Indication: BREAST CANCER
     Dosage: UNK
  3. CYTOXAN [Suspect]
     Indication: BREAST CANCER
     Dosage: UNK

REACTIONS (2)
  - Cellulitis [Unknown]
  - Meconium stain [Unknown]
